FAERS Safety Report 7535817-8 (Version None)
Quarter: 2011Q2

REPORT INFORMATION
  Report Type: 
  Country: None (occurrence: None)
  Receive Date: 20110524
  Receipt Date: 20110127
  Transmission Date: 20111010
  Serious: Yes (Hospitalization)
  Sender: FDA-Public Use
  Company Number: 023770

PATIENT
  Sex: Female

DRUGS (1)
  1. CIMZIA [Suspect]
     Indication: CROHN'S DISEASE
     Dosage: (SUBCUTANEOUS)
     Route: 058
     Dates: start: 20101115

REACTIONS (4)
  - BRONCHITIS [None]
  - FREQUENT BOWEL MOVEMENTS [None]
  - PYREXIA [None]
  - BIPOLAR DISORDER [None]
